FAERS Safety Report 9331607 (Version 2)
Quarter: 2013Q2

REPORT INFORMATION
  Report Type: Spontaneous
  Country: CO (occurrence: CO)
  Receive Date: 20130605
  Receipt Date: 20130606
  Transmission Date: 20140414
  Serious: Yes (Hospitalization, Other)
  Sender: FDA-Public Use
  Company Number: CO-JNJFOC-20130502524

PATIENT
  Age: 6 Year
  Sex: Male
  Weight: 13.5 kg

DRUGS (2)
  1. TOPAMAC [Suspect]
     Indication: PARTIAL SEIZURES
     Route: 048
  2. KEPPRA [Concomitant]
     Indication: EPILEPSY
     Route: 065

REACTIONS (2)
  - Convulsion [Unknown]
  - Drug dose omission [Unknown]
